FAERS Safety Report 20192503 (Version 1)
Quarter: 2021Q4

REPORT INFORMATION
  Report Type: Spontaneous
  Country: VE (occurrence: VE)
  Receive Date: 20211216
  Receipt Date: 20211216
  Transmission Date: 20220303
  Serious: Yes (Death, Hospitalization, Other)
  Sender: FDA-Public Use
  Company Number: VE-NOVARTISPH-NVSC2021VE288311

PATIENT
  Sex: Female

DRUGS (1)
  1. GLIVEC [Suspect]
     Active Substance: IMATINIB MESYLATE
     Indication: Chronic myeloid leukaemia
     Dosage: 400 MG (4X 100 MG)
     Route: 065

REACTIONS (5)
  - Death [Fatal]
  - Speech disorder [Unknown]
  - Headache [Unknown]
  - Cerebellar haemorrhage [Unknown]
  - Hypertension [Unknown]
